FAERS Safety Report 20906058 (Version 1)
Quarter: 2022Q2

REPORT INFORMATION
  Report Type: Spontaneous
  Country: US (occurrence: None)
  Receive Date: 20220601
  Receipt Date: 20220601
  Transmission Date: 20220720
  Serious: No
  Sender: FDA-Public Use
  Company Number: None

PATIENT
  Age: 76 Year
  Sex: Female
  Weight: 63 kg

DRUGS (8)
  1. PAXLOVID [Suspect]
     Active Substance: NIRMATRELVIR\RITONAVIR
     Indication: COVID-19
     Dates: start: 20220521, end: 20220526
  2. PRAVASTATIN [Concomitant]
     Active Substance: PRAVASTATIN
  3. ESTRADIOL [Concomitant]
     Active Substance: ESTRADIOL
  4. FOSAMAX [Concomitant]
     Active Substance: ALENDRONATE SODIUM
  5. CALCIUM [Concomitant]
     Active Substance: CALCIUM
  6. VITAMIN D [Concomitant]
     Active Substance: VITAMIN D NOS
  7. VITAMIN B12 [Concomitant]
     Active Substance: CYANOCOBALAMIN
  8. flaxoil [Concomitant]

REACTIONS (3)
  - Rebound effect [None]
  - COVID-19 [None]
  - Illness [None]

NARRATIVE: CASE EVENT DATE: 20220531
